FAERS Safety Report 7042153-5 (Version None)
Quarter: 2010Q4

REPORT INFORMATION
  Report Type: 
  Country: None (occurrence: None)
  Receive Date: 20101013
  Receipt Date: 20100322
  Transmission Date: 20110411
  Serious: No
  Sender: FDA-Public Use
  Company Number: US-ASTRAZENECA-2010SE12520

PATIENT
  Age: 25522 Day
  Sex: Female
  Weight: 56.2 kg

DRUGS (12)
  1. SYMBICORT [Suspect]
     Dosage: 160/4.5 MG TWO PUFFS
     Route: 055
     Dates: start: 20100320
  2. MORPHINE [Concomitant]
  3. NITROGLYCERIN [Concomitant]
  4. LORAZEPAM [Concomitant]
  5. FUROSEMIDE [Concomitant]
  6. IPRATROPIUM BROMIDE [Concomitant]
  7. ALBUTEROL SULFATE [Concomitant]
  8. SIMVASTATIN [Concomitant]
  9. PROCHLORPERAZINE [Concomitant]
  10. ASPIRIN [Concomitant]
  11. FLAVOXATE [Concomitant]
  12. FISH OIL [Concomitant]

REACTIONS (4)
  - DRUG DOSE OMISSION [None]
  - FEELING ABNORMAL [None]
  - NERVOUSNESS [None]
  - WRONG TECHNIQUE IN DRUG USAGE PROCESS [None]
